FAERS Safety Report 5994886-7 (Version None)
Quarter: 2008Q4

REPORT INFORMATION
  Report Type: 
  Country: None (occurrence: None)
  Receive Date: 20081212
  Receipt Date: 20081205
  Transmission Date: 20090506
  Serious: Yes (Hospitalization)
  Sender: FDA-Public Use
  Company Number: FR-WYE-G02750608

PATIENT
  Age: 40 Year
  Sex: Male

DRUGS (1)
  1. RAPAMUNE [Suspect]
     Indication: PROPHYLAXIS AGAINST TRANSPLANT REJECTION
     Dosage: OVERDOSE AMOUNT WAS UNKNOWN
     Route: 048
     Dates: start: 20080601, end: 20080601

REACTIONS (2)
  - LUNG DISORDER [None]
  - OVERDOSE [None]
